FAERS Safety Report 8564548 (Version 2)
Quarter: 2013Q3

REPORT INFORMATION
  Report Type: Spontaneous
  Country: BR (occurrence: BR)
  Receive Date: 20120516
  Receipt Date: 20130705
  Transmission Date: 20140515
  Serious: Yes (Hospitalization, Congenital Anomaly)
  Sender: FDA-Public Use
  Company Number: BR-SANOFI-AVENTIS-2012SA033568

PATIENT
  Age: 0 Day
  Sex: Female
  Weight: 2.3 kg

DRUGS (3)
  1. ENOXAPARIN SODIUM [Suspect]
     Indication: EXPOSURE DURING PREGNANCY
     Route: 064
     Dates: start: 20101229
  2. ASPIRINA [Concomitant]
     Indication: EXPOSURE DURING PREGNANCY
     Dosage: MOTHER RECEIVED 100 MG
     Route: 064
     Dates: start: 20101229
  3. UTROGESTAN [Concomitant]
     Indication: EXPOSURE DURING PREGNANCY
     Dosage: MOTHER RECEIVED 100 MG
     Route: 064
     Dates: start: 20101229

REACTIONS (4)
  - Congenital megacolon [Recovered/Resolved with Sequelae]
  - Foetal exposure during pregnancy [Unknown]
  - Hyperinsulinism [Recovered/Resolved with Sequelae]
  - Congenital central hypoventilation syndrome [Recovered/Resolved with Sequelae]
